FAERS Safety Report 21171683 (Version 4)
Quarter: 2022Q3

REPORT INFORMATION
  Report Type: Spontaneous
  Country: US (occurrence: US)
  Receive Date: 20220804
  Receipt Date: 20220823
  Transmission Date: 20221027
  Serious: Yes (Other)
  Sender: FDA-Public Use
  Company Number: US-PFIZER INC-202201030801

PATIENT
  Age: 91 Year
  Sex: Male

DRUGS (3)
  1. TRIAZOLAM [Suspect]
     Active Substance: TRIAZOLAM
     Dosage: 0.25 MG
  2. TRIAZOLAM [Suspect]
     Active Substance: TRIAZOLAM
     Dosage: 0.125 MG, (REPEATS TAKING 0.125MG ONCE OR TWICE DURING THE NIGHT)
  3. TRIAZOLAM [Suspect]
     Active Substance: TRIAZOLAM
     Dosage: 0.5 MG IN DIVIDED DOSES EACH NIGHT

REACTIONS (4)
  - Pericarditis constrictive [Unknown]
  - Intentional product use issue [Unknown]
  - Off label use [Unknown]
  - Product use issue [Unknown]
